FAERS Safety Report 8052178-9 (Version None)
Quarter: 2012Q1

REPORT INFORMATION
  Report Type: 
  Country: None (occurrence: None)
  Receive Date: 20120118
  Receipt Date: 20120112
  Transmission Date: 20120608
  Serious: No
  Sender: FDA-Public Use
  Company Number: US-PFIZER INC-2010118073

PATIENT
  Sex: Female
  Weight: 95.238 kg

DRUGS (12)
  1. PREMARIN [Concomitant]
     Dosage: 0.625
  2. PRISTIQ [Suspect]
     Indication: DEPRESSION
     Dosage: 100 MG, DAILY
  3. LISINOPRIL AND HYDROCHLOROTHIAZIDE [Concomitant]
     Dosage: 20/12.5 MG, 2X/DAY
  4. LEVOTHYROXINE [Concomitant]
     Dosage: 125 UG, DAILY
  5. PRISTIQ [Suspect]
     Dosage: 50 MG, AS NEEDED
  6. ATENOLOL [Concomitant]
     Dosage: 50 MG, DAILY
  7. TEMAZEPAM [Concomitant]
  8. NORVASC [Suspect]
     Dosage: 2X/DAY
  9. LOVASTATIN [Concomitant]
     Dosage: 20 MG, DAILY
  10. CLONAZEPAM [Concomitant]
     Dosage: 2 MG, DAILY
  11. NORTRIPTYLINE [Concomitant]
     Dosage: 75 MG, DAILY
  12. CELEBREX [Concomitant]
     Dosage: 200MG EVERY DAY

REACTIONS (3)
  - CRYING [None]
  - MALAISE [None]
  - EMOTIONAL DISORDER [None]
